FAERS Safety Report 22048613 (Version 1)
Quarter: 2023Q1

REPORT INFORMATION
  Report Type: Spontaneous
  Country: US (occurrence: None)
  Receive Date: 20230228
  Receipt Date: 20230228
  Transmission Date: 20230418
  Serious: Yes (Other)
  Sender: FDA-Public Use
  Company Number: None

PATIENT
  Age: 28 Year
  Sex: Female

DRUGS (7)
  1. PAXLOVID [Suspect]
     Active Substance: NIRMATRELVIR\RITONAVIR
     Indication: COVID-19
     Dosage: FREQUENCY : EVERY 12 HOURS;?
     Route: 048
     Dates: start: 20230220, end: 20230225
  2. NIRMATRELVIR [Suspect]
     Active Substance: NIRMATRELVIR
  3. RITONAVIR [Suspect]
     Active Substance: RITONAVIR
  4. Nuun hydration [Concomitant]
  5. Bragg Nutritional Yeast [Concomitant]
  6. B-VITAMINS [Concomitant]
  7. FOLATE SODIUM [Concomitant]
     Active Substance: FOLATE SODIUM

REACTIONS (2)
  - Photosensitivity reaction [None]
  - Vertigo [None]

NARRATIVE: CASE EVENT DATE: 20230228
